FAERS Safety Report 24554921 (Version 1)
Quarter: 2024Q4

REPORT INFORMATION
  Report Type: Spontaneous
  Country: JP (occurrence: JP)
  Receive Date: 20241028
  Receipt Date: 20241028
  Transmission Date: 20250115
  Serious: Yes (Hospitalization, Other)
  Sender: GLAXOSMITHKLINE
  Company Number: JP-GSK-JP2024JPN129632

PATIENT

DRUGS (1)
  1. VALTREX [Suspect]
     Active Substance: VALACYCLOVIR HYDROCHLORIDE
     Indication: Herpes zoster
     Dosage: 3000 MG

REACTIONS (8)
  - Toxic encephalopathy [Unknown]
  - Altered state of consciousness [Unknown]
  - Renal impairment [Unknown]
  - Dysarthria [Unknown]
  - Decreased appetite [Unknown]
  - Tremor [Unknown]
  - Nephropathy [Unknown]
  - Prescribed overdose [Unknown]
